FAERS Safety Report 11374817 (Version 1)
Quarter: 2015Q3

REPORT INFORMATION
  Report Type: Spontaneous
  Country: US (occurrence: US)
  Receive Date: 20150813
  Receipt Date: 20150813
  Transmission Date: 20151125
  Serious: No
  Sender: FDA-Public Use
  Company Number: US-SUN PHARMACEUTICAL INDUSTRIES LTD-2014SUN01749

PATIENT

DRUGS (1)
  1. ALPRAZOLAM TABS C-IV 0.25MG [Suspect]
     Active Substance: ALPRAZOLAM
     Indication: MIGRAINE
     Dosage: ONE TABLET OR MOST OF TIME HALF TABLET
     Route: 065
     Dates: start: 20140705

REACTIONS (3)
  - Drug ineffective [Unknown]
  - Feeling abnormal [Recovered/Resolved]
  - Dehydration [Recovered/Resolved]

NARRATIVE: CASE EVENT DATE: 20140705
